FAERS Safety Report 7302290-4 (Version None)
Quarter: 2011Q1

REPORT INFORMATION
  Report Type: 
  Country: None (occurrence: None)
  Receive Date: 20110218
  Receipt Date: 20110207
  Transmission Date: 20110831
  Serious: Yes (Other)
  Sender: FDA-Public Use
  Company Number: GB-WATSON-2011-01918

PATIENT
  Age: 76 Year
  Sex: Male

DRUGS (1)
  1. DOXAZOSIN MESYLATE [Suspect]
     Indication: HYPERTENSION
     Dosage: 8 MG, DAILY
     Route: 048

REACTIONS (1)
  - FLOPPY IRIS SYNDROME [None]
